FAERS Safety Report 9914186 (Version 2)
Quarter: 2014Q1

REPORT INFORMATION
  Report Type: Spontaneous
  Country: US (occurrence: None)
  Receive Date: 20140218
  Receipt Date: 20140219
  Transmission Date: 20141002
  Serious: Yes (Hospitalization, Other)
  Sender: FDA-Public Use
  Company Number: 2014P1000340

PATIENT
  Age: 63 Year
  Sex: Male
  Weight: 79.38 kg

DRUGS (3)
  1. LAMOTRIGINE TABLETS 25MG [Suspect]
     Indication: BIPOLAR DISORDER
     Dosage: 25 MG; BID; PO
     Route: 048
     Dates: start: 20131003, end: 20131010
  2. LITHIUM [Concomitant]
  3. HYDROCODONE [Suspect]

REACTIONS (15)
  - Influenza like illness [None]
  - Headache [None]
  - Dehydration [None]
  - Viral infection [None]
  - Pyrexia [None]
  - Rash [None]
  - Nausea [None]
  - Hypophagia [None]
  - Urinary tract infection [None]
  - Meningitis aseptic [None]
  - Renal injury [None]
  - Hypovolaemia [None]
  - Hypertension [None]
  - Hyponatraemia [None]
  - Renal cyst [None]
